FAERS Safety Report 7889079-2 (Version None)
Quarter: 2011Q4

REPORT INFORMATION
  Report Type: 
  Country: None (occurrence: None)
  Receive Date: 20111103
  Receipt Date: 20111025
  Transmission Date: 20120403
  Serious: Yes (Death, Hospitalization, Other)
  Sender: FDA-Public Use
  Company Number: CA-BAXTER-2011BH033406

PATIENT
  Sex: Male

DRUGS (2)
  1. DIANEAL [Suspect]
     Indication: PERITONEAL DIALYSIS
     Route: 033
  2. NUTRINEAL [Suspect]
     Indication: PERITONEAL DIALYSIS
     Route: 033

REACTIONS (8)
  - INADEQUATE DIET [None]
  - ASTHENIA [None]
  - MALAISE [None]
  - DEATH [None]
  - FAILURE TO THRIVE [None]
  - PNEUMONIA [None]
  - HYPERTENSION [None]
  - CONDITION AGGRAVATED [None]
